FAERS Safety Report 9308578 (Version 1)
Quarter: 2013Q2

REPORT INFORMATION
  Report Type: Report from Study
  Country: JP (occurrence: JP)
  Receive Date: 20130524
  Receipt Date: 20130524
  Transmission Date: 20140414
  Serious: Yes (Death)
  Sender: FDA-Public Use
  Company Number: JP-GENZYME-THYM-1003825

PATIENT
  Age: 78 Year
  Sex: Male
  Weight: 51 kg

DRUGS (18)
  1. THYMOGLOBULIN [Suspect]
     Indication: APLASTIC ANAEMIA
     Dosage: 150 MG, QD
     Route: 065
     Dates: start: 20121217, end: 20121221
  2. MIYA-BM [Concomitant]
     Indication: DIARRHOEA
     Dosage: UNK
     Route: 065
     Dates: start: 20121212, end: 20121218
  3. SOL-MELCORT [Concomitant]
     Indication: APLASTIC ANAEMIA
     Dosage: UNK
     Route: 065
     Dates: start: 20121217, end: 20121221
  4. NEORAL [Concomitant]
     Indication: APLASTIC ANAEMIA
     Dosage: UNK
     Route: 065
     Dates: start: 20121217, end: 20121231
  5. ACINON [Concomitant]
     Indication: PROPHYLAXIS
     Dosage: UNK
     Route: 065
     Dates: start: 20121217, end: 20121231
  6. MUCOSTA [Concomitant]
     Indication: PROPHYLAXIS
     Dosage: UNK
     Route: 065
     Dates: start: 20121217, end: 20121231
  7. ACETAMINOPHEN [Concomitant]
     Indication: PROPHYLAXIS
     Dosage: UNK
     Route: 065
     Dates: start: 20121217, end: 20121221
  8. RESTAMINE [Concomitant]
     Indication: PROPHYLAXIS
     Dosage: UNK
     Route: 065
     Dates: start: 20121217, end: 20121221
  9. CRAVIT [Concomitant]
     Indication: PRODUCT USED FOR UNKNOWN INDICATION
     Dosage: UNK
     Route: 065
     Dates: start: 20121218, end: 20121231
  10. ITRIZOLE [Concomitant]
     Indication: PRODUCT USED FOR UNKNOWN INDICATION
     Dosage: UNK
     Route: 065
     Dates: start: 20121218, end: 20121231
  11. NEUTROGIN [Concomitant]
     Indication: APLASTIC ANAEMIA
     Dosage: UNK
     Route: 065
     Dates: start: 20121222
  12. PREDONINE [Concomitant]
     Indication: APLASTIC ANAEMIA
  13. PREDONINE [Concomitant]
  14. MEYLON [Concomitant]
     Indication: ACIDOSIS
     Dosage: UNK
     Route: 065
     Dates: start: 20121231, end: 20130105
  15. HUMULIN [Concomitant]
     Indication: HYPERGLYCAEMIA
     Dosage: UNK
     Route: 065
     Dates: start: 20130101, end: 20130105
  16. PRECEDEX [Concomitant]
     Indication: SEDATION
     Dosage: UNK
     Route: 065
     Dates: start: 20130102, end: 20130105
  17. OMEPRAL [Concomitant]
     Indication: GASTRIC DISORDER
     Dosage: UNK
     Route: 065
     Dates: start: 20130103, end: 20130105
  18. MAXIPIME [Concomitant]
     Indication: PRODUCT USED FOR UNKNOWN INDICATION
     Dosage: UNK
     Route: 065
     Dates: start: 20121218, end: 20121230

REACTIONS (6)
  - Respiratory failure [Fatal]
  - Renal disorder [Fatal]
  - Shock [Fatal]
  - Liver disorder [Fatal]
  - Leukopenia [Fatal]
  - Pneumonia [Fatal]
